FAERS Safety Report 8457934-0 (Version None)
Quarter: 2012Q2

REPORT INFORMATION
  Report Type: 
  Country: None (occurrence: None)
  Receive Date: 20120618
  Receipt Date: 20120618
  Transmission Date: 20120825
  Serious: Yes (Other)
  Sender: FDA-Public Use
  Company Number: None

PATIENT
  Sex: Female

DRUGS (1)
  1. SANDOSTATIN [Suspect]
     Indication: NEOPLASM MALIGNANT
     Dosage: 30MG EVERY 4 WEEKS IM INJECTION
     Route: 030
     Dates: start: 20120430, end: 20120613

REACTIONS (1)
  - ABDOMINAL PAIN [None]
